FAERS Safety Report 8478123-X (Version None)
Quarter: 2012Q2

REPORT INFORMATION
  Report Type: 
  Country: None (occurrence: None)
  Receive Date: 20120629
  Receipt Date: 20120618
  Transmission Date: 20120825
  Serious: Yes (Other)
  Sender: FDA-Public Use
  Company Number: MX-SANOFI-AVENTIS-2012SA043731

PATIENT
  Age: 53 Year
  Sex: Female
  Weight: 75 kg

DRUGS (2)
  1. ARALEN [Suspect]
     Indication: RHEUMATOID ARTHRITIS
     Route: 048
     Dates: start: 20040101, end: 20111201
  2. METHOTREXATE [Concomitant]
     Indication: RHEUMATOID ARTHRITIS
     Dosage: DOSAGE:2 TABLETS / A WEEK (1 TABLET ON SATURDAY AND 1 TABLET ON SUNDAY)STRENGTH: 5MG
     Route: 048
     Dates: start: 20040101

REACTIONS (1)
  - TYPE 2 DIABETES MELLITUS [None]
